FAERS Safety Report 6591391-4 (Version None)
Quarter: 2010Q1

REPORT INFORMATION
  Report Type: 
  Country: None (occurrence: None)
  Receive Date: 20100219
  Receipt Date: 20100209
  Transmission Date: 20100710
  Serious: Yes (Hospitalization)
  Sender: FDA-Public Use
  Company Number: ES-WATSON-2010-01649

PATIENT
  Age: 58 Year
  Sex: Male

DRUGS (4)
  1. CARBOPLATIN [Suspect]
     Indication: NON-SMALL CELL LUNG CANCER
     Dosage: UNK
  2. CYANOCOBALAMIN [Suspect]
     Indication: NON-SMALL CELL LUNG CANCER
     Dosage: 4 MG, UNKNOWN
     Route: 048
  3. FOLIC ACID [Suspect]
     Indication: NON-SMALL CELL LUNG CANCER
     Dosage: 0.4 MG, Q8H
     Route: 048
  4. PEMETREXED [Suspect]
     Indication: NON-SMALL CELL LUNG CANCER
     Dosage: 500 MG, UNK

REACTIONS (1)
  - TOXIC EPIDERMAL NECROLYSIS [None]
